FAERS Safety Report 10016712 (Version 1)
Quarter: 2014Q1

REPORT INFORMATION
  Report Type: Report from Study
  Country: US (occurrence: US)
  Receive Date: 20140318
  Receipt Date: 20140318
  Transmission Date: 20141002
  Serious: Yes (Other)
  Sender: FDA-Public Use
  Company Number: PHEH2014US005227

PATIENT
  Sex: Male

DRUGS (1)
  1. EXFORGE [Suspect]
     Dosage: UNK UKN, UNK

REACTIONS (3)
  - Glucose tolerance impaired [Not Recovered/Not Resolved]
  - Overweight [Not Recovered/Not Resolved]
  - Blood glucose increased [Not Recovered/Not Resolved]
